FAERS Safety Report 14690906 (Version 1)
Quarter: 2018Q1

REPORT INFORMATION
  Report Type: Spontaneous
  Country: AU (occurrence: AU)
  Receive Date: 20180328
  Receipt Date: 20180328
  Transmission Date: 20180509
  Serious: Yes (Hospitalization, Other)
  Sender: FDA-Public Use
  Company Number: PHHY2017AU113008

PATIENT
  Age: 56 Year
  Sex: Male

DRUGS (2)
  1. MYCOPHENOLATE MOFETIL. [Suspect]
     Active Substance: MYCOPHENOLATE MOFETIL
     Indication: IMMUNOSUPPRESSANT DRUG THERAPY
     Route: 065
  2. TACROLIMUS. [Suspect]
     Active Substance: TACROLIMUS
     Indication: IMMUNOSUPPRESSION
     Route: 065

REACTIONS (8)
  - IIIrd nerve paralysis [Recovered/Resolved]
  - Aspergillus infection [Recovered/Resolved]
  - Brain abscess [Recovered/Resolved]
  - Headache [Recovered/Resolved]
  - Abscess fungal [Recovering/Resolving]
  - Bone erosion [Unknown]
  - Quadrantanopia [Recovered/Resolved]
  - Diplopia [Recovered/Resolved]
